FAERS Safety Report 5845156-9 (Version None)
Quarter: 2008Q3

REPORT INFORMATION
  Report Type: 
  Country: None (occurrence: None)
  Receive Date: 20080814
  Receipt Date: 20080805
  Transmission Date: 20090109
  Serious: Yes (Hospitalization)
  Sender: FDA-Public Use
  Company Number: PHHY2008DE17294

PATIENT
  Sex: Female

DRUGS (1)
  1. EXELON [Suspect]
     Indication: DEMENTIA
     Dosage: 9.5 MG/24 HRS
     Route: 062
     Dates: start: 20070101, end: 20080805

REACTIONS (3)
  - BREAST CANCER RECURRENT [None]
  - BREAST OPERATION [None]
  - DELIRIUM [None]
